FAERS Safety Report 11953627 (Version 2)
Quarter: 2016Q2

REPORT INFORMATION
  Report Type: Report from Study
  Country: JP (occurrence: JP)
  Receive Date: 20160126
  Receipt Date: 20160624
  Transmission Date: 20160815
  Serious: Yes (Hospitalization)
  Sender: FDA-Public Use
  Company Number: JP-ASTRAZENECA-2016SE06082

PATIENT
  Age: 86 Year
  Sex: Female
  Weight: 35 kg

DRUGS (9)
  1. BAYASPIRIN [Concomitant]
     Active Substance: ASPIRIN
     Indication: CORONARY ANGIOPLASTY
     Dosage: DOSE UNKNOWN
     Route: 065
  2. MAINTATE [Concomitant]
     Active Substance: BISOPROLOL FUMARATE
     Indication: HYPERTENSION
     Route: 048
  3. DAIKENCHUTO [Concomitant]
     Active Substance: HERBALS
     Indication: CONSTIPATION
     Route: 048
  4. CINAL [Concomitant]
     Active Substance: ASCORBIC ACID\CALCIUM PANTOTHENATE
     Indication: IRON DEFICIENCY ANAEMIA
     Route: 048
     Dates: start: 20151024
  5. NEXIUM [Suspect]
     Active Substance: ESOMEPRAZOLE MAGNESIUM
     Indication: PROPHYLAXIS AGAINST GASTROINTESTINAL ULCER
     Route: 048
     Dates: start: 20140125
  6. NESINA [Concomitant]
     Active Substance: ALOGLIPTIN BENZOATE
     Indication: DIABETES MELLITUS
     Route: 048
  7. CIBENOL [Concomitant]
     Active Substance: CIFENLINE
     Indication: POST-TRAUMATIC STRESS DISORDER
     Route: 048
  8. FERROMIA [Concomitant]
     Active Substance: FERROUS CITRATE
     Indication: CONSTIPATION
     Route: 048
     Dates: start: 20151024
  9. LIPITOR [Concomitant]
     Active Substance: ATORVASTATIN CALCIUM
     Indication: DYSLIPIDAEMIA
     Route: 048

REACTIONS (1)
  - Skin injury [Recovered/Resolved]

NARRATIVE: CASE EVENT DATE: 20160113
